FAERS Safety Report 17103730 (Version 6)
Quarter: 2020Q1

REPORT INFORMATION
  Report Type: Report from Study
  Country: None (occurrence: US)
  Receive Date: 20191203
  Receipt Date: 20200225
  Transmission Date: 20200409
  Serious: Yes (Other)
  Sender: FDA-Public Use
  Company Number: US-ABBVIE-19K-163-3174335-00

PATIENT
  Sex: Female

DRUGS (4)
  1. HUMIRA [Suspect]
     Active Substance: ADALIMUMAB
     Indication: PSORIASIS
     Route: 058
     Dates: start: 202001
  2. HUMIRA [Suspect]
     Active Substance: ADALIMUMAB
     Indication: PSORIATIC ARTHROPATHY
     Dosage: DAY 1
     Route: 058
     Dates: start: 20191116, end: 20191116
  3. HUMIRA [Suspect]
     Active Substance: ADALIMUMAB
     Indication: PSORIASIS
  4. HUMIRA [Suspect]
     Active Substance: ADALIMUMAB
     Indication: PSORIATIC ARTHROPATHY
     Route: 058
     Dates: start: 20191117, end: 202001

REACTIONS (20)
  - Product dispensing error [Unknown]
  - Splinter [Unknown]
  - Pruritus [Recovering/Resolving]
  - Erythema [Unknown]
  - Wound infection [Recovered/Resolved]
  - Staphylococcal infection [Unknown]
  - Pain of skin [Not Recovered/Not Resolved]
  - Tooth disorder [Unknown]
  - Fatigue [Unknown]
  - General physical condition abnormal [Not Recovered/Not Resolved]
  - Alopecia [Not Recovered/Not Resolved]
  - Arthralgia [Not Recovered/Not Resolved]
  - Melanocytic naevus [Unknown]
  - Skin laceration [Recovered/Resolved]
  - Skin laceration [Unknown]
  - Night sweats [Not Recovered/Not Resolved]
  - Drug ineffective [Unknown]
  - Skin irritation [Recovering/Resolving]
  - Wound complication [Recovered/Resolved]
  - Psoriasis [Not Recovered/Not Resolved]

NARRATIVE: CASE EVENT DATE: 2019
